FAERS Safety Report 26111202 (Version 1)
Quarter: 2025Q4

REPORT INFORMATION
  Report Type: Spontaneous
  Country: CA (occurrence: CA)
  Receive Date: 20251202
  Receipt Date: 20251202
  Transmission Date: 20260117
  Serious: Yes (Hospitalization, Other)
  Sender: AUROBINDO
  Company Number: CA-AUROBINDO-AUR-APL-2025-049484

PATIENT
  Age: 4 Year
  Sex: Male

DRUGS (8)
  1. AMOXICILLIN [Suspect]
     Active Substance: AMOXICILLIN
     Indication: Tooth abscess
     Dosage: UNK
     Route: 065
  2. AMOXICILLIN [Suspect]
     Active Substance: AMOXICILLIN
     Indication: Otitis media
     Dosage: UNK
     Route: 065
  3. RUPATADINE [Concomitant]
     Active Substance: RUPATADINE
     Indication: Rash pruritic
     Dosage: 10 MILLIGRAM
  4. EPINEPHRINE [Concomitant]
     Active Substance: EPINEPHRINE
     Indication: Rash pruritic
     Dosage: 0.15 MILLIGRAM
  5. RINGERS SOLUTION [Concomitant]
     Active Substance: CALCIUM CHLORIDE\POTASSIUM CHLORIDE\SODIUM CHLORIDE
     Indication: Rash pruritic
     Dosage: 500 MILLIGRAM
     Route: 065
  6. RINGERS SOLUTION [Concomitant]
     Active Substance: CALCIUM CHLORIDE\POTASSIUM CHLORIDE\SODIUM CHLORIDE
     Dosage: 70 ML/HR OF MAINTENANCE FOR 16  H
     Route: 065
  7. RINGERS SOLUTION [Concomitant]
     Active Substance: CALCIUM CHLORIDE\POTASSIUM CHLORIDE\SODIUM CHLORIDE
     Indication: Rash pruritic
     Dosage: 5 MILLIGRAM, ONCE A DAY
  8. PREDNISONE [Concomitant]
     Active Substance: PREDNISONE
     Indication: Rash pruritic
     Dosage: 1  MG/KG

REACTIONS (2)
  - Serum sickness-like reaction [Recovered/Resolved]
  - Thrombocytosis [Unknown]
